FAERS Safety Report 20749167 (Version 1)
Quarter: 2022Q2

REPORT INFORMATION
  Report Type: Report from Study
  Country: IT (occurrence: IT)
  Receive Date: 20220426
  Receipt Date: 20220426
  Transmission Date: 20220721
  Serious: Yes (Other)
  Sender: FDA-Public Use
  Company Number: None

PATIENT
  Age: 79 Year
  Sex: Male
  Weight: 70 kg

DRUGS (3)
  1. DOCETAXEL [Suspect]
     Active Substance: DOCETAXEL
     Indication: Neoplasm malignant
     Route: 042
     Dates: start: 20211011, end: 20220321
  2. CITALOPRAM [Concomitant]
     Active Substance: CITALOPRAM HYDROBROMIDE
     Route: 048
  3. TIOCONAZOLE [Concomitant]
     Active Substance: TIOCONAZOLE
     Dosage: STRENGTH: 28%, FOR NAIL USE
     Route: 003

REACTIONS (1)
  - Nail disorder [Recovering/Resolving]

NARRATIVE: CASE EVENT DATE: 20220321
